FAERS Safety Report 4711742-2 (Version None)
Quarter: 2005Q3

REPORT INFORMATION
  Report Type: 
  Country: None (occurrence: None)
  Receive Date: 20050712
  Receipt Date: 20050706
  Transmission Date: 20060218
  Serious: Yes (Other)
  Sender: FDA-Public Use
  Company Number: PHEH2005US07465

PATIENT
  Age: 53 Year
  Sex: Male

DRUGS (3)
  1. ZELNORM [Suspect]
     Indication: CONSTIPATION
     Dosage: 6 MG, BID
     Route: 048
     Dates: start: 20050601, end: 20050703
  2. LIPITOR [Suspect]
     Dosage: 10 MG, QD
     Route: 048
     Dates: start: 20050601, end: 20050703
  3. ZOLOFT [Concomitant]
     Dates: start: 20020101

REACTIONS (1)
  - CONVULSION [None]
